FAERS Safety Report 22288952 (Version 1)
Quarter: 2023Q2

REPORT INFORMATION
  Report Type: Spontaneous
  Country: US (occurrence: None)
  Receive Date: 20230504
  Receipt Date: 20230504
  Transmission Date: 20230722
  Serious: Yes (Hospitalization)
  Sender: FDA-Public Use
  Company Number: None

PATIENT
  Sex: Male

DRUGS (1)
  1. JULUCA [Suspect]
     Active Substance: DOLUTEGRAVIR SODIUM\RILPIVIRINE HYDROCHLORIDE
     Indication: HIV infection
     Dosage: OTHER QUANTITY : 50/25MG;?FREQUENCY : DAILY;?
     Route: 048
     Dates: start: 202012

REACTIONS (5)
  - Hypertensive crisis [None]
  - Acute myocardial infarction [None]
  - Depression [None]
  - Constipation [None]
  - Diarrhoea [None]
